FAERS Safety Report 7532207-9 (Version None)
Quarter: 2011Q2

REPORT INFORMATION
  Report Type: 
  Country: None (occurrence: None)
  Receive Date: 20110608
  Receipt Date: 20110525
  Transmission Date: 20111010
  Serious: Yes (Other)
  Sender: FDA-Public Use
  Company Number: CA-JNJFOC-20110511995

PATIENT
  Sex: Male
  Weight: 69 kg

DRUGS (3)
  1. SOLU-CORTEF [Concomitant]
     Indication: PREMEDICATION
  2. REMICADE [Suspect]
     Indication: CROHN'S DISEASE
     Route: 042
     Dates: start: 20090401
  3. BENADRYL [Concomitant]
     Indication: PREMEDICATION

REACTIONS (1)
  - COLONOSCOPY [None]
